FAERS Safety Report 4598325-2 (Version None)
Quarter: 2005Q1

REPORT INFORMATION
  Report Type: 
  Country: None (occurrence: None)
  Receive Date: 20050304
  Receipt Date: 20050118
  Transmission Date: 20050727
  Serious: Yes (Death, Other)
  Sender: FDA-Public Use
  Company Number: PHHO2005HN01139

PATIENT
  Sex: Male

DRUGS (1)
  1. GLEEVEC [Suspect]
     Indication: CHRONIC MYELOID LEUKAEMIA
     Dosage: 400 MG, QD
     Route: 048
     Dates: start: 20040525, end: 20051020

REACTIONS (6)
  - BONE PAIN [None]
  - HEPATOMEGALY [None]
  - PANCYTOPENIA [None]
  - PYREXIA [None]
  - SEPSIS [None]
  - SPLENOMEGALY [None]
